FAERS Safety Report 15689407 (Version 3)
Quarter: 2019Q3

REPORT INFORMATION
  Report Type: Spontaneous
  Country: FR (occurrence: FR)
  Receive Date: 20181205
  Receipt Date: 20190806
  Transmission Date: 20191004
  Serious: Yes (Life-Threatening, Hospitalization)
  Sender: FDA-Public Use
  Company Number: FR-CELGENEUS-FRA-20180509817

PATIENT
  Age: 72 Year
  Sex: Male

DRUGS (19)
  1. VENETOCLAX. [Concomitant]
     Active Substance: VENETOCLAX
     Indication: ACUTE MYELOID LEUKAEMIA
     Route: 048
     Dates: start: 20180502, end: 20180517
  2. LANTUS [Concomitant]
     Active Substance: INSULIN GLARGINE
     Dosage: 18 IU (INTERNATIONAL UNIT)
     Route: 065
     Dates: start: 20180424, end: 20180430
  3. RASBURICASE [Concomitant]
     Active Substance: RASBURICASE
     Indication: PROPHYLAXIS
  4. KARDEGIC [Concomitant]
     Active Substance: ASPIRIN DL-LYSINE
     Indication: PROPHYLAXIS
     Dosage: 75 MILLIGRAM
     Route: 048
     Dates: start: 2004
  5. ATENOLOL. [Concomitant]
     Active Substance: ATENOLOL
     Indication: MYOCARDIAL INFARCTION
     Dosage: 25 MILLIGRAM
     Route: 048
     Dates: start: 2004
  6. CORDARONE [Concomitant]
     Active Substance: AMIODARONE HYDROCHLORIDE
     Indication: VENTRICULAR FIBRILLATION
     Dosage: 200 MILLIGRAM
     Route: 048
     Dates: start: 20180530, end: 20180628
  7. RASBURICASE [Concomitant]
     Active Substance: RASBURICASE
     Indication: TUMOUR LYSIS SYNDROME
     Dosage: 7.5 MG
     Route: 041
     Dates: start: 20180502, end: 20180504
  8. LANTUS [Concomitant]
     Active Substance: INSULIN GLARGINE
     Dosage: 20 IU (INTERNATIONAL UNIT)
     Route: 065
     Dates: start: 20180509, end: 20180516
  9. AZACITIDINE. [Suspect]
     Active Substance: AZACITIDINE
     Indication: ACUTE MYELOID LEUKAEMIA
     Dosage: 75 MILLIGRAM/SQ. METER
     Route: 058
     Dates: start: 20180502, end: 20180508
  10. LANTUS [Concomitant]
     Active Substance: INSULIN GLARGINE
     Dosage: 14 IU (INTERNATIONAL UNIT)
     Route: 065
     Dates: start: 20180421, end: 20180423
  11. LANTUS [Concomitant]
     Active Substance: INSULIN GLARGINE
     Dosage: 18 IU (INTERNATIONAL UNIT)
     Route: 065
     Dates: start: 20180505, end: 20180507
  12. LANTUS [Concomitant]
     Active Substance: INSULIN GLARGINE
     Dosage: 20 IU (INTERNATIONAL UNIT)
     Route: 065
     Dates: start: 20180519, end: 20180531
  13. LANTUS [Concomitant]
     Active Substance: INSULIN GLARGINE
     Dosage: 16 IU (INTERNATIONAL UNIT)
     Route: 065
     Dates: start: 20180501, end: 20180504
  14. NOVORAPID [Concomitant]
     Active Substance: INSULIN ASPART
     Indication: DIABETES MELLITUS
     Dosage: 10-10-5 IU
     Route: 058
     Dates: start: 20180416, end: 20180501
  15. NOVORAPID [Concomitant]
     Active Substance: INSULIN ASPART
     Dosage: 8 - 8 - 10 - 16 IU
     Route: 058
     Dates: start: 20190502
  16. LANTUS [Concomitant]
     Active Substance: INSULIN GLARGINE
     Indication: DIABETES MELLITUS
     Dosage: 10 IU (INTERNATIONAL UNIT)
     Route: 065
     Dates: start: 20180417, end: 20190418
  17. LANTUS [Concomitant]
     Active Substance: INSULIN GLARGINE
     Dosage: 12 IU (INTERNATIONAL UNIT)
     Route: 065
     Dates: start: 20180419, end: 20180420
  18. LANTUS [Concomitant]
     Active Substance: INSULIN GLARGINE
     Dosage: 17 IU (INTERNATIONAL UNIT)
     Route: 065
     Dates: start: 20180601
  19. CORDARONE [Concomitant]
     Active Substance: AMIODARONE HYDROCHLORIDE
     Indication: VENTRICULAR ARRHYTHMIA

REACTIONS (1)
  - Systemic inflammatory response syndrome [Not Recovered/Not Resolved]

NARRATIVE: CASE EVENT DATE: 20180515
